FAERS Safety Report 15900051 (Version 1)
Quarter: 2019Q1

REPORT INFORMATION
  Report Type: Spontaneous
  Country: FR (occurrence: FR)
  Receive Date: 20190201
  Receipt Date: 20190201
  Transmission Date: 20190417
  Serious: Yes (Hospitalization)
  Sender: FDA-Public Use
  Company Number: FR-TEVA-2019-FR-1006329

PATIENT
  Age: 20 Year
  Sex: Male
  Weight: 59 kg

DRUGS (2)
  1. IFOSFAMIDE EG [Suspect]
     Active Substance: IFOSFAMIDE
     Indication: EWING^S SARCOMA
     Dates: start: 20181127, end: 20181127
  2. DOXORUBICINE TEVA [Suspect]
     Active Substance: DOXORUBICIN
     Indication: EWING^S SARCOMA
     Dates: start: 20181127, end: 20181127

REACTIONS (2)
  - Thrombocytopenia [Recovering/Resolving]
  - Febrile neutropenia [Recovered/Resolved]

NARRATIVE: CASE EVENT DATE: 20181203
